FAERS Safety Report 16495286 (Version 2)
Quarter: 2022Q3

REPORT INFORMATION
  Report Type: Spontaneous
  Country: US (occurrence: US)
  Receive Date: 20190628
  Receipt Date: 20220929
  Transmission Date: 20221027
  Serious: Yes (Hospitalization, Other)
  Sender: FDA-Public Use
  Company Number: US-AUROBINDO-AUR-APL-2019-035952

PATIENT
  Age: 19 Month
  Sex: Female

DRUGS (2)
  1. CLOZAPINE [Suspect]
     Active Substance: CLOZAPINE
     Indication: Molluscum contagiosum
     Dosage: 200 MILLIGRAM, TOTAL (FIRST EVENING DOSE, CRUSHED ONE PILL AND MIXED IT INTO WATER WHICH WAS DRANK )
     Route: 048
  2. CLOZAPINE [Suspect]
     Active Substance: CLOZAPINE
     Dosage: 1 DOSAGE FORM, 1 TOTAL
     Route: 065

REACTIONS (11)
  - Toxicity to various agents [Recovered/Resolved]
  - Eye movement disorder [Recovered/Resolved]
  - Drooling [Recovered/Resolved]
  - Somnolence [Recovered/Resolved]
  - Tachycardia [Recovered/Resolved]
  - Lethargy [Recovered/Resolved]
  - Accidental exposure to product [Recovered/Resolved]
  - Product dispensing error [Recovered/Resolved]
  - Ataxia [Recovered/Resolved]
  - Accidental overdose [Recovered/Resolved]
  - Mental status changes [Recovered/Resolved]
